FAERS Safety Report 7844893-4 (Version None)
Quarter: 2011Q4

REPORT INFORMATION
  Report Type: 
  Country: None (occurrence: None)
  Receive Date: 20111025
  Receipt Date: 20100629
  Transmission Date: 20120403
  Serious: No
  Sender: FDA-Public Use
  Company Number: US-BAYER-201026784NA

PATIENT

DRUGS (1)
  1. CIPROFLOXACIN [Suspect]

REACTIONS (4)
  - ERYTHEMA [None]
  - INFUSION SITE REACTION [None]
  - INJECTION SITE STREAKING [None]
  - PRURITUS [None]
